FAERS Safety Report 9701193 (Version 1)
Quarter: 2013Q4

REPORT INFORMATION
  Report Type: Spontaneous
  Country: US (occurrence: US)
  Receive Date: 20131107
  Receipt Date: 20131107
  Transmission Date: 20140711
  Serious: No
  Sender: FDA-Public Use
  Company Number: US-ENDO PHARMACEUTICALS INC.-SULF20120001

PATIENT
  Sex: Male
  Weight: 59.93 kg

DRUGS (6)
  1. SULFASALAZINE DR (EC) [Suspect]
     Indication: ANKYLOSING SPONDYLITIS
     Route: 048
  2. LYRICA [Suspect]
     Indication: FIBROMYALGIA
     Route: 048
  3. LYRICA [Suspect]
     Route: 048
  4. LYRICA [Suspect]
     Route: 048
  5. NABUMETONE [Concomitant]
     Indication: PRODUCT USED FOR UNKNOWN INDICATION
     Route: 048
  6. TRAMADOL [Concomitant]
     Indication: PAIN
     Route: 048

REACTIONS (1)
  - Abdominal pain upper [Unknown]
